FAERS Safety Report 14340722 (Version 2)
Quarter: 2018Q1

REPORT INFORMATION
  Report Type: Report from Study
  Country: FR (occurrence: FR)
  Receive Date: 20180101
  Receipt Date: 20180101
  Transmission Date: 20180509
  Serious: Yes (Other)
  Sender: FDA-Public Use
  Company Number: FR-HETERO CORPORATE-HET2017FR00432

PATIENT
  Sex: Male

DRUGS (2)
  1. BARACLUDE [Suspect]
     Active Substance: ENTECAVIR
     Indication: HEPATITIS B
     Dosage: 0.5 MG, QD
     Route: 064
     Dates: start: 20111007, end: 20150311
  2. TENOFOVIR [Suspect]
     Active Substance: TENOFOVIR
     Indication: HEPATITIS B
     Dosage: 245 MG, QD
     Route: 064
     Dates: start: 20150311

REACTIONS (5)
  - Foetal hypokinesia [Unknown]
  - Foetal heart rate abnormal [Unknown]
  - Respiratory distress [Unknown]
  - Foetal exposure during pregnancy [Unknown]
  - Premature delivery [Recovered/Resolved]
